FAERS Safety Report 5283643-5 (Version None)
Quarter: 2007Q1

REPORT INFORMATION
  Report Type: 
  Country: None (occurrence: None)
  Receive Date: 20070329
  Receipt Date: 20070329
  Transmission Date: 20070707
  Serious: Yes (Hospitalization)
  Sender: FDA-Public Use
  Company Number: None

PATIENT
  Sex: Male
  Weight: 48.18 kg

DRUGS (7)
  1. GEMCITABINE HCL [Suspect]
     Dosage: 1520 MG
  2. FENTANYL TRANSDERMAL SYSTEM [Suspect]
     Dosage: 150MCG
  3. LEXAPRO [Suspect]
     Dosage: 10MG
  4. VICODIN [Suspect]
  5. AMBIEN [Concomitant]
  6. LEXAPRO [Concomitant]
  7. VICODIN [Concomitant]

REACTIONS (3)
  - ABDOMINAL PAIN [None]
  - NAUSEA [None]
  - VOMITING [None]
